FAERS Safety Report 6715401-6 (Version None)
Quarter: 2010Q2

REPORT INFORMATION
  Report Type: 
  Country: None (occurrence: None)
  Receive Date: 20100507
  Receipt Date: 20100429
  Transmission Date: 20101027
  Serious: Yes (Life-Threatening, Other)
  Sender: FDA-Public Use
  Company Number: US-BAYER-200924935NA

PATIENT
  Age: 58 Year
  Sex: Male
  Weight: 102 kg

DRUGS (6)
  1. NEXAVAR [Suspect]
     Indication: HEPATIC NEOPLASM MALIGNANT
     Dosage: TOTAL DAILY DOSE: 400 MG  UNIT DOSE: 200 MG
     Route: 048
     Dates: start: 20090528, end: 20090604
  2. NEXAVAR [Suspect]
     Dosage: TOTAL DAILY DOSE: 800 MG  UNIT DOSE: 200 MG
     Route: 048
     Dates: start: 20090605, end: 20090617
  3. NEXAVAR [Suspect]
     Dosage: TOTAL DAILY DOSE: 400 MG  UNIT DOSE: 200 MG
     Route: 048
     Dates: start: 20090618, end: 20090624
  4. OXYCONTIN [Concomitant]
     Dosage: TOTAL DAILY DOSE: 60 MG
     Dates: start: 20080401
  5. OXYCODONE HCL [Concomitant]
     Dosage: 15
     Dates: start: 20080401
  6. FOMAX [Concomitant]
     Dosage: TOTAL DAILY DOSE: 0.4 MG
     Dates: start: 20060101

REACTIONS (2)
  - NEPHROLITHIASIS [None]
  - THROMBOCYTOPENIA [None]
